FAERS Safety Report 11833897 (Version 1)
Quarter: 2015Q4

REPORT INFORMATION
  Report Type: Report from Study
  Country: CA (occurrence: CA)
  Receive Date: 20151214
  Receipt Date: 20151214
  Transmission Date: 20160305
  Serious: Yes (Other)
  Sender: FDA-Public Use
  Company Number: CA-GILEAD-2014-0117561

PATIENT
  Age: 60 Year
  Sex: Male

DRUGS (3)
  1. PEGINTERFERON ALFA-2A [Concomitant]
     Active Substance: PEGINTERFERON ALFA-2A
     Dosage: UNK
     Dates: start: 20140914, end: 20141207
  2. SOFOSBUVIR [Suspect]
     Active Substance: SOFOSBUVIR
     Indication: HEPATITIS C
     Dosage: 400 MG, QD
     Route: 048
     Dates: start: 20140914, end: 20141207
  3. RIBAVIRIN. [Concomitant]
     Active Substance: RIBAVIRIN
     Dosage: UNK
     Dates: start: 20140914, end: 20141207

REACTIONS (10)
  - Malaise [Unknown]
  - Hallucination [Unknown]
  - Memory impairment [Unknown]
  - Furuncle [Unknown]
  - Somnolence [Unknown]
  - Fatigue [Unknown]
  - Acne [Unknown]
  - Drug ineffective [Unknown]
  - Pruritus [Unknown]
  - Amnesia [Unknown]
